FAERS Safety Report 7551001-6 (Version None)
Quarter: 2011Q2

REPORT INFORMATION
  Report Type: 
  Country: None (occurrence: None)
  Receive Date: 20110616
  Receipt Date: 20110606
  Transmission Date: 20111010
  Serious: Yes (Hospitalization, Other)
  Sender: FDA-Public Use
  Company Number: US-MYLANLABS-2011S1008854

PATIENT
  Age: 70 Year
  Sex: Female
  Weight: 58.97 kg

DRUGS (4)
  1. FOSAMAX [Concomitant]
     Dates: start: 20110404
  2. COZAAR [Suspect]
  3. FLONASE [Concomitant]
     Dates: start: 20110404
  4. LISINOPRIL [Suspect]
     Indication: BLOOD PRESSURE INCREASED
     Route: 048
     Dates: start: 20110307, end: 20110428

REACTIONS (8)
  - BLOOD PRESSURE INCREASED [None]
  - HEADACHE [None]
  - DRUG INEFFECTIVE [None]
  - INCORRECT DOSE ADMINISTERED [None]
  - NERVOUSNESS [None]
  - PALPITATIONS [None]
  - DIZZINESS [None]
  - PANIC ATTACK [None]
